FAERS Safety Report 23647048 (Version 2)
Quarter: 2024Q1

REPORT INFORMATION
  Report Type: Spontaneous
  Country: SK (occurrence: SK)
  Receive Date: 20240319
  Receipt Date: 20240325
  Transmission Date: 20240410
  Serious: Yes (Death)
  Sender: FDA-Public Use
  Company Number: SK-IMMUNOGEN, INC.-SK-IMGN-24-00157

PATIENT
  Sex: Female

DRUGS (1)
  1. ELAHERE [Suspect]
     Active Substance: MIRVETUXIMAB SORAVTANSINE-GYNX
     Indication: Ovarian cancer stage III
     Dosage: UNK, CYCLIC,3 CYCLES, 3 DOSES, A TOTAL OF 15 AMPOULES
     Route: 042
     Dates: start: 2023

REACTIONS (3)
  - Disease progression [Fatal]
  - Toxicity to various agents [Unknown]
  - Therapy interrupted [Unknown]

NARRATIVE: CASE EVENT DATE: 20230101
